FAERS Safety Report 26074503 (Version 1)
Quarter: 2025Q4

REPORT INFORMATION
  Report Type: Spontaneous
  Country: US (occurrence: US)
  Receive Date: 20251121
  Receipt Date: 20251121
  Transmission Date: 20260117
  Serious: Yes (Other)
  Sender: MYLAN
  Company Number: US-MYLANLABS-2025M1098052

PATIENT
  Age: 57 Year
  Sex: Male

DRUGS (32)
  1. PREDNISONE [Suspect]
     Active Substance: PREDNISONE
     Indication: Immune-mediated lung disease
     Dosage: 100 MILLIGRAM, QD
     Route: 065
  2. PREDNISONE [Suspect]
     Active Substance: PREDNISONE
     Dosage: 100 MILLIGRAM, QD
  3. PREDNISONE [Suspect]
     Active Substance: PREDNISONE
     Dosage: 100 MILLIGRAM, QD
  4. PREDNISONE [Suspect]
     Active Substance: PREDNISONE
     Dosage: 100 MILLIGRAM, QD
     Route: 065
  5. PREDNISONE [Suspect]
     Active Substance: PREDNISONE
     Dosage: UNK, GRADUAL TAPER OF DOSE AT 10MG PER WEEK
  6. PREDNISONE [Suspect]
     Active Substance: PREDNISONE
     Dosage: UNK, GRADUAL TAPER OF DOSE AT 10MG PER WEEK
  7. PREDNISONE [Suspect]
     Active Substance: PREDNISONE
     Dosage: UNK, GRADUAL TAPER OF DOSE AT 10MG PER WEEK
     Route: 065
  8. PREDNISONE [Suspect]
     Active Substance: PREDNISONE
     Dosage: UNK, GRADUAL TAPER OF DOSE AT 10MG PER WEEK
     Route: 065
  9. PREDNISONE [Suspect]
     Active Substance: PREDNISONE
     Dosage: UNK, QD, DOSE TAPERED AT 10 TO 20MG
     Route: 065
  10. PREDNISONE [Suspect]
     Active Substance: PREDNISONE
     Dosage: UNK, QD, DOSE TAPERED AT 10 TO 20MG
  11. PREDNISONE [Suspect]
     Active Substance: PREDNISONE
     Dosage: UNK, QD, DOSE TAPERED AT 10 TO 20MG
  12. PREDNISONE [Suspect]
     Active Substance: PREDNISONE
     Dosage: UNK, QD, DOSE TAPERED AT 10 TO 20MG
     Route: 065
  13. PREDNISONE [Suspect]
     Active Substance: PREDNISONE
     Dosage: UNK, DOSE INCREASED MULTIPLE TIMES OVER THE COURSE OF SEVERAL MONTHS
  14. PREDNISONE [Suspect]
     Active Substance: PREDNISONE
     Dosage: UNK, DOSE INCREASED MULTIPLE TIMES OVER THE COURSE OF SEVERAL MONTHS
  15. PREDNISONE [Suspect]
     Active Substance: PREDNISONE
     Dosage: UNK, DOSE INCREASED MULTIPLE TIMES OVER THE COURSE OF SEVERAL MONTHS
     Route: 065
  16. PREDNISONE [Suspect]
     Active Substance: PREDNISONE
     Dosage: UNK, DOSE INCREASED MULTIPLE TIMES OVER THE COURSE OF SEVERAL MONTHS
     Route: 065
  17. PREDNISONE [Suspect]
     Active Substance: PREDNISONE
     Dosage: 20 MILLIGRAM, QD, DOSE TAPERED GRADUALLY
  18. PREDNISONE [Suspect]
     Active Substance: PREDNISONE
     Dosage: 20 MILLIGRAM, QD, DOSE TAPERED GRADUALLY
  19. PREDNISONE [Suspect]
     Active Substance: PREDNISONE
     Dosage: 20 MILLIGRAM, QD, DOSE TAPERED GRADUALLY
     Route: 065
  20. PREDNISONE [Suspect]
     Active Substance: PREDNISONE
     Dosage: 20 MILLIGRAM, QD, DOSE TAPERED GRADUALLY
     Route: 065
  21. PREDNISONE [Suspect]
     Active Substance: PREDNISONE
     Dosage: 7 MILLIGRAM, QD, DOSE TAPERED GRADUALLY
  22. PREDNISONE [Suspect]
     Active Substance: PREDNISONE
     Dosage: 7 MILLIGRAM, QD, DOSE TAPERED GRADUALLY
     Route: 065
  23. PREDNISONE [Suspect]
     Active Substance: PREDNISONE
     Dosage: 7 MILLIGRAM, QD, DOSE TAPERED GRADUALLY
  24. PREDNISONE [Suspect]
     Active Substance: PREDNISONE
     Dosage: 7 MILLIGRAM, QD, DOSE TAPERED GRADUALLY
     Route: 065
  25. TOCILIZUMAB [Concomitant]
     Active Substance: TOCILIZUMAB
     Indication: Immune-mediated lung disease
     Dosage: 800 MILLIGRAM, Q28D, RECEIVED 5 DOSES
  26. TOCILIZUMAB [Concomitant]
     Active Substance: TOCILIZUMAB
     Dosage: 800 MILLIGRAM, Q28D, RECEIVED 5 DOSES
     Route: 042
  27. TOCILIZUMAB [Concomitant]
     Active Substance: TOCILIZUMAB
     Dosage: 800 MILLIGRAM, Q28D, RECEIVED 5 DOSES
     Route: 042
  28. TOCILIZUMAB [Concomitant]
     Active Substance: TOCILIZUMAB
     Dosage: 800 MILLIGRAM, Q28D, RECEIVED 5 DOSES
  29. TOCILIZUMAB [Concomitant]
     Active Substance: TOCILIZUMAB
     Indication: Immune-mediated lung disease
     Dosage: 162 MILLIGRAM, Q2W
  30. TOCILIZUMAB [Concomitant]
     Active Substance: TOCILIZUMAB
     Dosage: 162 MILLIGRAM, Q2W
     Route: 058
  31. TOCILIZUMAB [Concomitant]
     Active Substance: TOCILIZUMAB
     Dosage: 162 MILLIGRAM, Q2W
     Route: 058
  32. TOCILIZUMAB [Concomitant]
     Active Substance: TOCILIZUMAB
     Dosage: 162 MILLIGRAM, Q2W

REACTIONS (6)
  - Rebound effect [Recovered/Resolved]
  - Diabetes mellitus [Recovering/Resolving]
  - Dizziness postural [Recovering/Resolving]
  - Affective disorder [Recovering/Resolving]
  - Condition aggravated [Recovering/Resolving]
  - Asthenia [Recovering/Resolving]
